FAERS Safety Report 9860846 (Version 2)
Quarter: 2014Q1

REPORT INFORMATION
  Report Type: Spontaneous
  Country: AU (occurrence: AU)
  Receive Date: 20140202
  Receipt Date: 20140202
  Transmission Date: 20141002
  Serious: No
  Sender: FDA-Public Use
  Company Number: AU-ALLERGAN-1301557US

PATIENT
  Age: 50 Year
  Sex: Female

DRUGS (2)
  1. BOTOX [Suspect]
     Indication: SKIN WRINKLING
     Dosage: UNK, SINGLE
     Route: 030
     Dates: start: 20121010, end: 20121010
  2. BOTOX [Suspect]
     Dosage: UNK, SINGLE
     Route: 030
     Dates: start: 20121104, end: 20121104

REACTIONS (2)
  - Off label use [Unknown]
  - Drug ineffective [Unknown]
